FAERS Safety Report 9384000 (Version 1)
Quarter: 2013Q3

REPORT INFORMATION
  Report Type: Spontaneous
  Country: US (occurrence: US)
  Receive Date: 20130705
  Receipt Date: 20130705
  Transmission Date: 20140515
  Serious: No
  Sender: FDA-Public Use
  Company Number: US-JNJFOC-20130615804

PATIENT
  Sex: Female
  Weight: 82.56 kg

DRUGS (3)
  1. DURAGESIC [Suspect]
     Indication: PAIN
     Route: 062
     Dates: start: 2012
  2. FENTANYL [Suspect]
     Indication: PRODUCT USED FOR UNKNOWN INDICATION
     Route: 062
  3. HYDROCODONE BITARTRATE AND ACETAMINOPHEN [Concomitant]
     Indication: PAIN
     Route: 065

REACTIONS (3)
  - Wrong technique in drug usage process [Recovered/Resolved]
  - Wrong technique in drug usage process [Recovered/Resolved]
  - Product quality issue [Recovered/Resolved]
